FAERS Safety Report 16677639 (Version 1)
Quarter: 2019Q3

REPORT INFORMATION
  Report Type: Spontaneous
  Country: TR (occurrence: TR)
  Receive Date: 20190807
  Receipt Date: 20190807
  Transmission Date: 20191004
  Serious: Yes (Death, Other)
  Sender: FDA-Public Use
  Company Number: TR-SA-2019SA215201

PATIENT
  Sex: Male
  Weight: 70 kg

DRUGS (1)
  1. FABRAZYME [Suspect]
     Active Substance: AGALSIDASE BETA
     Dosage: 2 FLACONS IN 2 WEEKS
     Route: 065

REACTIONS (2)
  - Haemorrhage intracranial [Fatal]
  - Blood pressure abnormal [Unknown]

NARRATIVE: CASE EVENT DATE: 201907
